FAERS Safety Report 23531571 (Version 1)
Quarter: 2024Q1

REPORT INFORMATION
  Report Type: Spontaneous
  Country: US (occurrence: US)
  Receive Date: 20240216
  Receipt Date: 20240216
  Transmission Date: 20240410
  Serious: Yes (Hospitalization)
  Sender: FDA-Public Use
  Company Number: US-JNJFOC-20240213690

PATIENT
  Age: 77 Year
  Sex: Female

DRUGS (6)
  1. TECVAYLI [Suspect]
     Active Substance: TECLISTAMAB-CQYV
     Indication: Plasma cell myeloma
     Route: 065
     Dates: start: 202306
  2. TECVAYLI [Suspect]
     Active Substance: TECLISTAMAB-CQYV
     Route: 065
  3. TECVAYLI [Suspect]
     Active Substance: TECLISTAMAB-CQYV
     Route: 065
  4. TECVAYLI [Suspect]
     Active Substance: TECLISTAMAB-CQYV
     Route: 065
  5. TECVAYLI [Suspect]
     Active Substance: TECLISTAMAB-CQYV
     Dosage: HASN^T HAD TREATMENT SINCE ABOUT NOV 27TH
     Route: 065
  6. HUMAN IMMUNOGLOBULIN G [Suspect]
     Active Substance: HUMAN IMMUNOGLOBULIN G
     Indication: Prophylaxis
     Route: 065

REACTIONS (13)
  - Hospitalisation [Unknown]
  - Laboratory test abnormal [Recovered/Resolved]
  - Injection site hypersensitivity [Recovered/Resolved]
  - Erythema [Recovered/Resolved]
  - Proctalgia [Recovered/Resolved]
  - Rectal tenesmus [Recovered/Resolved]
  - Gastrointestinal inflammation [Recovered/Resolved]
  - Paraesthesia [Recovered/Resolved]
  - Weight decreased [Recovered/Resolved]
  - Reaction to excipient [Recovered/Resolved]
  - Therapy cessation [Unknown]
  - Nausea [Recovered/Resolved]
  - Influenza [Recovered/Resolved]
